FAERS Safety Report 11966824 (Version 1)
Quarter: 2016Q1

REPORT INFORMATION
  Report Type: Spontaneous
  Country: EG (occurrence: EG)
  Receive Date: 20160127
  Receipt Date: 20160127
  Transmission Date: 20160526
  Serious: Yes (Death)
  Sender: FDA-Public Use
  Company Number: EG-NOVOPROD-477712

PATIENT
  Age: 64 Year
  Sex: Male

DRUGS (1)
  1. MIXTARD 30 HM PENFILL [Suspect]
     Active Substance: INSULIN HUMAN
     Indication: TYPE 1 DIABETES MELLITUS
     Dosage: 60 IU, QD (40 IU AT MORNING AND 20 IU AT NIGHT)
     Route: 058

REACTIONS (3)
  - Hypertension [Fatal]
  - Diabetes mellitus inadequate control [Unknown]
  - Cardiac failure [Fatal]

NARRATIVE: CASE EVENT DATE: 20151212
